FAERS Safety Report 8522589-3 (Version None)
Quarter: 2012Q3

REPORT INFORMATION
  Report Type: 
  Country: None (occurrence: None)
  Receive Date: 20120719
  Receipt Date: 20120710
  Transmission Date: 20120928
  Serious: No
  Sender: FDA-Public Use
  Company Number: US-B.I. PHARMACEUTICALS,INC./RIDGEFIELD-2012-BP-15329BP

PATIENT
  Sex: Female

DRUGS (17)
  1. ZOLPIDEM [Concomitant]
     Route: 048
  2. NEURONTIN [Concomitant]
     Dosage: 300 MG
     Route: 048
  3. LORATADINE [Concomitant]
     Dosage: 10 MG
     Route: 048
  4. SIMVASTATIN [Concomitant]
     Dosage: 20 MG
     Route: 048
  5. CITALOPRAM HYDROBROMIDE [Concomitant]
     Dosage: 40 MG
     Route: 048
  6. NAPHCON [Concomitant]
     Route: 031
  7. RITALIN-SR [Concomitant]
     Dosage: 10 MG
     Route: 048
  8. FLEXERIL [Concomitant]
     Route: 048
  9. ALBUTEROL CFC FREE [Concomitant]
     Route: 055
  10. ACYCLOVIR [Concomitant]
     Dosage: 1000 MG
     Route: 048
  11. MOBIC [Suspect]
  12. SUMATRIPTAN [Concomitant]
     Route: 048
  13. TRICOR [Concomitant]
     Dosage: 48 MG
     Route: 048
  14. TORADOL [Concomitant]
     Route: 030
  15. CELEBREX [Concomitant]
     Dosage: 200 MG
     Route: 048
  16. PREMARIN [Concomitant]
     Dosage: 0.3 MG
     Route: 048
  17. TRAMADOL HYDROCHLORIDE [Concomitant]
     Dosage: 200 MG
     Route: 048

REACTIONS (1)
  - ABDOMINAL DISCOMFORT [None]
